FAERS Safety Report 12557312 (Version 1)
Quarter: 2016Q3

REPORT INFORMATION
  Report Type: Spontaneous
  Country: US (occurrence: US)
  Receive Date: 20160714
  Receipt Date: 20160714
  Transmission Date: 20161109
  Serious: No
  Sender: FDA-Public Use
  Company Number: US-MANNKIND CORPORATION-2016MK000295

PATIENT
  Age: 40 Year
  Sex: Male
  Weight: 65.38 kg

DRUGS (1)
  1. AFREZZA [Suspect]
     Active Substance: INSULIN HUMAN
     Indication: TYPE 1 DIABETES MELLITUS
     Dosage: 4-12 UNITS
     Dates: start: 201601

REACTIONS (3)
  - Feeling abnormal [Unknown]
  - Blood glucose increased [Unknown]
  - Throat irritation [Unknown]

NARRATIVE: CASE EVENT DATE: 2016
